FAERS Safety Report 7202324-1 (Version None)
Quarter: 2010Q4

REPORT INFORMATION
  Report Type: 
  Country: None (occurrence: None)
  Receive Date: 20101215
  Receipt Date: 20101201
  Transmission Date: 20110411
  Serious: Yes (Hospitalization)
  Sender: FDA-Public Use
  Company Number: 2010005208

PATIENT
  Age: 75 Year
  Sex: Male
  Weight: 66.7695 kg

DRUGS (7)
  1. ERLOTINIB (ERLOTINIB) (TABLET) (ERLOTINIB) [Suspect]
     Indication: NON-SMALL CELL LUNG CANCER
     Dosage: (150 MG),ORAL
     Route: 048
     Dates: start: 20101112
  2. PAZOPANIB/PLACEBO [Suspect]
     Indication: NON-SMALL CELL LUNG CANCER
     Dosage: (600 MG),ORAL
     Route: 048
     Dates: start: 20101112
  3. COMPAZINE [Concomitant]
  4. OXYCODONE HCL [Concomitant]
  5. LISINOPRIL [Concomitant]
  6. HALOPERIDOL [Concomitant]
  7. MEGACE [Concomitant]

REACTIONS (2)
  - CONFUSIONAL STATE [None]
  - SUICIDAL IDEATION [None]
